FAERS Safety Report 6401294-3 (Version None)
Quarter: 2009Q4

REPORT INFORMATION
  Report Type: 
  Country: None (occurrence: None)
  Receive Date: 20091015
  Receipt Date: 20091006
  Transmission Date: 20100525
  Serious: Yes (Other)
  Sender: FDA-Public Use
  Company Number: PHEH2009US13102

PATIENT
  Sex: Female

DRUGS (1)
  1. FEMARA [Suspect]
     Dosage: UNK
     Dates: end: 20090201

REACTIONS (3)
  - ARTHRALGIA [None]
  - ARTHROPATHY [None]
  - BONE PAIN [None]
